FAERS Safety Report 9754361 (Version 1)
Quarter: 2013Q4

REPORT INFORMATION
  Report Type: Spontaneous
  Country: US (occurrence: US)
  Receive Date: 20131213
  Receipt Date: 20131213
  Transmission Date: 20140711
  Serious: No
  Sender: FDA-Public Use
  Company Number: US-PFIZER INC-2013353571

PATIENT
  Age: 33 Year
  Sex: Male
  Weight: 83.9 kg

DRUGS (2)
  1. TRIAMCINOLONE ACETONIDE [Suspect]
     Indication: RASH
     Dosage: UNK
  2. CHANTIX [Interacting]
     Indication: SMOKING CESSATION THERAPY
     Dosage: UNK
     Dates: end: 201311

REACTIONS (2)
  - Drug interaction [Unknown]
  - Drug screen positive [Unknown]
